FAERS Safety Report 10055837 (Version 3)
Quarter: 2014Q3

REPORT INFORMATION
  Report Type: Spontaneous
  Country: FR (occurrence: FR)
  Receive Date: 20140403
  Receipt Date: 20140714
  Transmission Date: 20150326
  Serious: Yes (Death, Hospitalization, Other)
  Sender: FDA-Public Use
  Company Number: FR-JNJFOC-20140314619

PATIENT
  Age: 82 Year
  Sex: Male

DRUGS (4)
  1. FLECAINE [Concomitant]
     Active Substance: FLECAINIDE
     Route: 065
  2. KARDEGIC [Concomitant]
     Active Substance: ASPIRIN LYSINE
     Route: 065
  3. XGEVA [Concomitant]
     Active Substance: DENOSUMAB
     Route: 065
  4. ZYTIGA [Suspect]
     Active Substance: ABIRATERONE ACETATE
     Indication: PRODUCT USED FOR UNKNOWN INDICATION
     Route: 048
     Dates: start: 20140114, end: 20140120

REACTIONS (3)
  - Cardiac failure [Recovering/Resolving]
  - Pulmonary arterial hypertension [Unknown]
  - Sepsis [Fatal]

NARRATIVE: CASE EVENT DATE: 20140212
